FAERS Safety Report 13891555 (Version 2)
Quarter: 2017Q4

REPORT INFORMATION
  Report Type: Spontaneous
  Country: DE (occurrence: DE)
  Receive Date: 20170822
  Receipt Date: 20171101
  Transmission Date: 20180320
  Serious: Yes (Hospitalization, Other)
  Sender: FDA-Public Use
  Company Number: PHHY2017DE120644

PATIENT
  Sex: Female

DRUGS (6)
  1. LAVENDER OIL [Concomitant]
     Active Substance: LAVENDER OIL
     Indication: PRODUCT USED FOR UNKNOWN INDICATION
     Dosage: UNK UNK, BID (TWICE DAILY IN THE EVENING)
     Route: 065
  2. MONOPOST [Concomitant]
     Indication: PRODUCT USED FOR UNKNOWN INDICATION
     Route: 065
  3. GABAPENTIN. [Concomitant]
     Active Substance: GABAPENTIN
     Indication: PRODUCT USED FOR UNKNOWN INDICATION
     Dosage: 200 MG, QID
     Route: 065
  4. AZOPT [Suspect]
     Active Substance: BRINZOLAMIDE
     Indication: OPEN ANGLE GLAUCOMA
  5. NEUROPLANT [Concomitant]
     Indication: PRODUCT USED FOR UNKNOWN INDICATION
     Dosage: 600 MG, UNK
     Route: 065
     Dates: start: 20170308
  6. AZOPT [Suspect]
     Active Substance: BRINZOLAMIDE
     Indication: OCULAR HYPERTENSION
     Dosage: UNK
     Route: 047
     Dates: start: 201604

REACTIONS (58)
  - Depression [Not Recovered/Not Resolved]
  - Hypothyroidism [Unknown]
  - Insomnia [Recovering/Resolving]
  - Oral herpes [Unknown]
  - Lymphadenopathy [Unknown]
  - Peripheral coldness [Unknown]
  - Respiration abnormal [Unknown]
  - Bronchial obstruction [Unknown]
  - Skin discolouration [Unknown]
  - Contusion [Unknown]
  - Cervicobrachial syndrome [Unknown]
  - Irritable bowel syndrome [Unknown]
  - Feeling hot [Unknown]
  - Tinnitus [Unknown]
  - Vision blurred [Not Recovered/Not Resolved]
  - General physical health deterioration [Not Recovered/Not Resolved]
  - Alopecia [Not Recovered/Not Resolved]
  - Sensory disturbance [Not Recovered/Not Resolved]
  - Neurogenic bowel [Unknown]
  - Sputum discoloured [Unknown]
  - Memory impairment [Not Recovered/Not Resolved]
  - Nausea [Unknown]
  - Burning sensation [Unknown]
  - Musculoskeletal pain [Unknown]
  - Chronic fatigue syndrome [Unknown]
  - Flatulence [Unknown]
  - Influenza like illness [Unknown]
  - Decreased appetite [Unknown]
  - Freezing phenomenon [Unknown]
  - Gastrointestinal sounds abnormal [Unknown]
  - Dry mouth [Unknown]
  - Dysgeusia [Not Recovered/Not Resolved]
  - Epistaxis [Not Recovered/Not Resolved]
  - Dyspnoea [Unknown]
  - Asthenia [Unknown]
  - Spinal pain [Unknown]
  - Blood pressure increased [Unknown]
  - Autoimmune thyroiditis [Unknown]
  - Dysphagia [Unknown]
  - Oropharyngeal pain [Unknown]
  - Somatic symptom disorder [Unknown]
  - Hypoaesthesia [Unknown]
  - Chapped lips [Unknown]
  - Vomiting [Unknown]
  - Diarrhoea [Unknown]
  - Rhinorrhoea [Unknown]
  - Madarosis [Unknown]
  - Spider vein [Unknown]
  - Hair colour changes [Unknown]
  - Myalgia [Unknown]
  - Thyroid mass [Unknown]
  - Dizziness [Unknown]
  - Cough [Unknown]
  - Oral pain [Unknown]
  - Erythema [Unknown]
  - Paraesthesia [Unknown]
  - Musculoskeletal stiffness [Unknown]
  - Phobia [Unknown]

NARRATIVE: CASE EVENT DATE: 2017
